FAERS Safety Report 6289070-6 (Version None)
Quarter: 2009Q3

REPORT INFORMATION
  Report Type: 
  Country: None (occurrence: None)
  Receive Date: 20090729
  Receipt Date: 20090720
  Transmission Date: 20100115
  Serious: Yes (Hospitalization)
  Sender: FDA-Public Use
  Company Number: AU-ASTRAZENECA-2009SE05121

PATIENT
  Age: 25422 Day
  Sex: Male

DRUGS (2)
  1. SYMBICORT [Suspect]
     Indication: RESPIRATORY DISORDER
     Route: 055
     Dates: start: 20070616, end: 20070727
  2. SPIRIVA [Suspect]
     Route: 055
     Dates: start: 20070613, end: 20070702

REACTIONS (1)
  - PLEURITIC PAIN [None]
